FAERS Safety Report 15531323 (Version 2)
Quarter: 2019Q1

REPORT INFORMATION
  Report Type: Spontaneous
  Country: US (occurrence: US)
  Receive Date: 20181019
  Receipt Date: 20190125
  Transmission Date: 20190417
  Serious: No
  Sender: FDA-Public Use
  Company Number: PHEH2018US043131

PATIENT
  Sex: Male

DRUGS (4)
  1. TAMSULOSIN [Concomitant]
     Active Substance: TAMSULOSIN
     Indication: BLADDER DISORDER
     Dosage: UNK
     Route: 065
  2. BUCLIZINE [Concomitant]
     Active Substance: BUCLIZINE
     Route: 065
  3. EXTAVIA [Suspect]
     Active Substance: INTERFERON BETA-1B
     Indication: MULTIPLE SCLEROSIS
     Route: 065
  4. MODAFINIL. [Concomitant]
     Active Substance: MODAFINIL
     Dosage: UNK
     Route: 065

REACTIONS (3)
  - Accidental exposure to product [Unknown]
  - Device issue [Unknown]
  - Syringe issue [Unknown]
